FAERS Safety Report 9410737 (Version 1)
Quarter: 2013Q3

REPORT INFORMATION
  Report Type: Spontaneous
  Country: NL (occurrence: NL)
  Receive Date: 20130719
  Receipt Date: 20130719
  Transmission Date: 20140515
  Serious: Yes (Other)
  Sender: FDA-Public Use
  Company Number: NL-ELI_LILLY_AND_COMPANY-NL201307003546

PATIENT
  Sex: Male

DRUGS (2)
  1. ZYPREXA [Suspect]
     Indication: PSYCHOTIC DISORDER
     Dosage: 1 DF, UNKNOWN
     Route: 065
     Dates: start: 2006, end: 2007
  2. ZYPREXA [Suspect]
     Indication: MOOD SWINGS

REACTIONS (7)
  - Gastric haemorrhage [Unknown]
  - Weight increased [Recovering/Resolving]
  - Tooth loss [Unknown]
  - Tic [Unknown]
  - Self esteem decreased [Unknown]
  - Cutis laxa [Unknown]
  - Hypotonia [Unknown]
